FAERS Safety Report 10040166 (Version 2)
Quarter: 2014Q1

REPORT INFORMATION
  Report Type: Spontaneous
  Country: FR (occurrence: FR)
  Receive Date: 20140326
  Receipt Date: 20140326
  Transmission Date: 20141002
  Serious: Yes (Life-Threatening, Hospitalization)
  Sender: FDA-Public Use
  Company Number: FR-ROCHE-930500102001

PATIENT
  Sex: Male

DRUGS (6)
  1. HYPNOVEL (INJ) [Suspect]
     Indication: ANAESTHESIA
     Route: 042
     Dates: start: 19930129, end: 19930129
  2. ATROPINE [Concomitant]
     Indication: ANAESTHESIA
     Route: 042
     Dates: start: 19930129, end: 19930129
  3. FENTANYL [Concomitant]
     Indication: ANAESTHESIA
     Route: 042
     Dates: start: 19930129, end: 19930129
  4. TRACRIUM [Concomitant]
     Indication: ANAESTHESIA
     Route: 042
     Dates: start: 19930129, end: 19930129
  5. HYPNOMIDATE [Concomitant]
     Indication: ANAESTHESIA
     Route: 042
     Dates: start: 19930129, end: 19930129
  6. ETHRANE [Concomitant]
     Indication: ANAESTHESIA
     Route: 065
     Dates: start: 19930129, end: 19930129

REACTIONS (1)
  - Pulmonary oedema [Recovered/Resolved]
